FAERS Safety Report 7471124-X (Version None)
Quarter: 2011Q2

REPORT INFORMATION
  Report Type: 
  Country: None (occurrence: None)
  Receive Date: 20110510
  Receipt Date: 20110504
  Transmission Date: 20111010
  Serious: Yes (Hospitalization)
  Sender: FDA-Public Use
  Company Number: US-B.I. PHARMACEUTICALS,INC./RIDGEFIELD-2011-BP-08012BP

PATIENT
  Sex: Male

DRUGS (11)
  1. PRADAXA [Suspect]
     Indication: ATRIAL FIBRILLATION
     Dosage: 300 MG
     Dates: start: 20110105, end: 20110220
  2. METOPROLOL SUCCINATE [Concomitant]
     Dosage: 12.5 MG
  3. NASACORT [Concomitant]
  4. AMIODARONE [Concomitant]
     Dosage: 400 MG
  5. FLOMAX [Concomitant]
     Dosage: 0.4 MG
     Route: 048
  6. PRADAXA [Suspect]
     Dosage: 300 MG
     Dates: end: 20110303
  7. PRADAXA [Suspect]
     Dosage: 300 MG
     Dates: start: 20100303
  8. ASPIRIN [Concomitant]
     Dosage: 81 MG
  9. CRESTOR [Concomitant]
     Dosage: 5 MG
  10. MULTIPURPOSE VITAMIN WITH BETA CAROTENE [Concomitant]
  11. SLOW-MAG [Concomitant]

REACTIONS (7)
  - MUSCULOSKELETAL PAIN [None]
  - NECK PAIN [None]
  - CHEST PAIN [None]
  - ABDOMINAL DISCOMFORT [None]
  - PAIN IN EXTREMITY [None]
  - GASTRITIS [None]
  - MYOCARDIAL INFARCTION [None]
